FAERS Safety Report 7082741-3 (Version None)
Quarter: 2010Q4

REPORT INFORMATION
  Report Type: 
  Country: None (occurrence: None)
  Receive Date: 20101001
  Receipt Date: 20100709
  Transmission Date: 20110411
  Serious: No
  Sender: FDA-Public Use
  Company Number: 1000014571

PATIENT
  Age: 66 Year
  Sex: Female
  Weight: 61.7 kg

DRUGS (1)
  1. BYSTOLIC [Suspect]
     Indication: AORTIC VALVE DISEASE
     Dosage: 2.5 MG (2.5 MG, 1 IN 1 D), ORAL
     Route: 048
     Dates: start: 20100314

REACTIONS (1)
  - THROMBOCYTOPENIA [None]
